FAERS Safety Report 6686461-6 (Version None)
Quarter: 2010Q2

REPORT INFORMATION
  Report Type: 
  Country: None (occurrence: None)
  Receive Date: 20100419
  Receipt Date: 20100412
  Transmission Date: 20101027
  Serious: Yes (Other)
  Sender: FDA-Public Use
  Company Number: US-RB-006775-10

PATIENT
  Sex: Female

DRUGS (3)
  1. SUBOXONE [Suspect]
     Route: 060
     Dates: start: 20100310
  2. SUBOXONE [Suspect]
     Dosage: DOSING DETAILS UNKNOWN
     Route: 060
     Dates: start: 20080101, end: 20080101
  3. PHENOBARBITAL TAB [Suspect]
     Indication: DETOXIFICATION
     Dosage: DOSING DETAILS UNKNOWN
     Route: 065
     Dates: start: 20080101

REACTIONS (6)
  - CONSTIPATION [None]
  - DEPRESSION [None]
  - DRUG DEPENDENCE [None]
  - LOSS OF CONSCIOUSNESS [None]
  - OVERDOSE [None]
  - PAIN [None]
